APPROVED DRUG PRODUCT: KENACORT
Active Ingredient: TRIAMCINOLONE
Strength: 2MG
Dosage Form/Route: TABLET;ORAL
Application: N011283 | Product #008
Applicant: DELCOR ASSET CORP
Approved: Approved Prior to Jan 1, 1982 | RLD: No | RS: No | Type: DISCN